FAERS Safety Report 9485804 (Version 2)
Quarter: 2013Q3

REPORT INFORMATION
  Report Type: Spontaneous
  Country: JP (occurrence: JP)
  Receive Date: 20130829
  Receipt Date: 20130905
  Transmission Date: 20140515
  Serious: Yes (Other)
  Sender: FDA-Public Use
  Company Number: JP-AMGEN-JPNSP2013060240

PATIENT
  Sex: 0

DRUGS (4)
  1. VECTIBIX [Suspect]
     Indication: COLON CANCER
     Dosage: UNK UNK, UNK
     Route: 041
  2. OXALIPLATIN [Suspect]
     Indication: COLON CANCER
     Dosage: UNK UNK, UNK
     Route: 041
  3. FLUOROURACIL [Suspect]
     Indication: COLON CANCER
     Dosage: UNK UNK, UNK
     Route: 041
  4. CALCIUM LEVOFOLINATE [Suspect]
     Indication: COLON CANCER
     Dosage: UNK UNK, UNK
     Route: 041

REACTIONS (1)
  - Congestive cardiomyopathy [Recovered/Resolved]
